FAERS Safety Report 6161553-9 (Version None)
Quarter: 2009Q2

REPORT INFORMATION
  Report Type: 
  Country: None (occurrence: None)
  Receive Date: 20090417
  Receipt Date: 20090403
  Transmission Date: 20091009
  Serious: Yes (Hospitalization)
  Sender: FDA-Public Use
  Company Number: 2009-194515-NL

PATIENT
  Sex: Female
  Weight: 77.1 kg

DRUGS (1)
  1. NUVARING [Suspect]
     Dates: start: 20070101

REACTIONS (2)
  - BREAST CANCER FEMALE [None]
  - VAGINAL HAEMORRHAGE [None]
